FAERS Safety Report 8603726-9 (Version None)
Quarter: 2012Q3

REPORT INFORMATION
  Report Type: 
  Country: None (occurrence: None)
  Receive Date: 20120817
  Receipt Date: 20120808
  Transmission Date: 20120928
  Serious: No
  Sender: FDA-Public Use
  Company Number: US-ASTRAZENECA-2012SE56026

PATIENT
  Sex: Female

DRUGS (1)
  1. TENORMIN [Suspect]
     Indication: CHRONIC OBSTRUCTIVE PULMONARY DISEASE
     Route: 048

REACTIONS (3)
  - DRUG INTOLERANCE [None]
  - SKIN EXFOLIATION [None]
  - OFF LABEL USE [None]
